FAERS Safety Report 6004842-0 (Version None)
Quarter: 2008Q4

REPORT INFORMATION
  Report Type: 
  Country: None (occurrence: None)
  Receive Date: 20081216
  Receipt Date: 20081206
  Transmission Date: 20090506
  Serious: Yes (Other)
  Sender: FDA-Public Use
  Company Number: US-PFIZER INC-2008095800

PATIENT
  Sex: Female
  Weight: 64.399 kg

DRUGS (3)
  1. LIPITOR [Suspect]
     Indication: BLOOD CHOLESTEROL INCREASED
     Dosage: 10 MG, 1X/DAY
     Route: 048
     Dates: start: 20020101, end: 20081101
  2. ACETYLSALICYLIC ACID [Suspect]
     Dosage: UNK
  3. CENTRUM SILVER [Concomitant]
     Dosage: UNK

REACTIONS (2)
  - CONTUSION [None]
  - THROMBOCYTOPENIA [None]
